FAERS Safety Report 8025977 (Version 12)
Quarter: 2012Q4

REPORT INFORMATION
  Report Type: 
  Country: US (occurrence: US)
  Receive Date: 20110708
  Receipt Date: 20121024
  Transmission Date: 20130627
  Serious: Yes (Disabling)
  Sender: FDA-Public Use
  Company Number: US-ALLERGAN-1103803US

PATIENT
  Age: 28 Year
  Sex: Female

DRUGS (7)
  1. BOTOX� [Suspect]
     Indication: CERVICAL DYSTONIA
     Dosage: 290 UNITS, single
     Route: 030
     Dates: start: 20070612, end: 20070612
  2. BOTOX� [Suspect]
     Indication: SWEATING INCREASED ARMPITS
     Dosage: 125 UNK, UNK
     Dates: start: 20020325, end: 20020325
  3. BOTOX� [Suspect]
     Dosage: 100 UNK, UNK
     Dates: start: 20010622, end: 20010622
  4. CELEXA [Concomitant]
     Indication: DRUG USE FOR UNKNOWN INDICATION
  5. CELEBREX [Concomitant]
     Indication: DRUG USE FOR UNKNOWN INDICATION
  6. VALIUM [Concomitant]
     Indication: DRUG USE FOR UNKNOWN INDICATION
  7. YASMIN [Concomitant]
     Indication: DRUG USE FOR UNKNOWN INDICATION

REACTIONS (2)
  - Pain [Recovering/Resolving]
  - Nervous system disorder [Unknown]
